FAERS Safety Report 20622679 (Version 11)
Quarter: 2022Q4

REPORT INFORMATION
  Report Type: Report from Study
  Country: US (occurrence: US)
  Receive Date: 20220322
  Receipt Date: 20221102
  Transmission Date: 20230112
  Serious: Yes (Other)
  Sender: FDA-Public Use
  Company Number: US-NOVARTISTESTPH-NVSC2022US063750

PATIENT
  Age: 63 Year
  Sex: Male
  Weight: 144 kg

DRUGS (2)
  1. ENTRESTO [Suspect]
     Active Substance: SACUBITRIL\VALSARTAN
     Indication: Cardiac failure congestive
     Dosage: 1 DOSAGE FORM, BID (97/103 MG)
     Route: 048
  2. ENTRESTO [Suspect]
     Active Substance: SACUBITRIL\VALSARTAN
     Indication: Hypertension
     Dosage: 0.5 DOSAGE FORM, BID (97/103 MG)
     Route: 048

REACTIONS (12)
  - Type 2 diabetes mellitus [Unknown]
  - Lyme disease [Unknown]
  - Hypertension [Unknown]
  - Hypotension [Unknown]
  - Weight decreased [Unknown]
  - Weight fluctuation [Unknown]
  - Illness [Unknown]
  - Pyrexia [Unknown]
  - Blood glucose increased [Unknown]
  - Arthropod bite [Unknown]
  - Inappropriate schedule of product administration [Unknown]
  - Wrong technique in product usage process [Unknown]

NARRATIVE: CASE EVENT DATE: 20211101
